FAERS Safety Report 14322968 (Version 1)
Quarter: 2017Q4

REPORT INFORMATION
  Report Type: Spontaneous
  Country: US (occurrence: US)
  Receive Date: 20171226
  Receipt Date: 20171226
  Transmission Date: 20180321
  Serious: Yes (Death)
  Sender: FDA-Public Use
  Company Number: US-INSYS THERAPEUTICS, INC-INS201712-000710

PATIENT
  Age: 30 Year
  Sex: Female

DRUGS (12)
  1. GABAPENTIN. [Suspect]
     Active Substance: GABAPENTIN
     Indication: PRODUCT USED FOR UNKNOWN INDICATION
     Route: 051
     Dates: start: 2016
  2. MELOXICAM. [Suspect]
     Active Substance: MELOXICAM
     Route: 048
     Dates: start: 2016
  3. LEVOTHYOXIN [Suspect]
     Active Substance: LEVOTHYROXINE
     Indication: PRODUCT USED FOR UNKNOWN INDICATION
     Route: 051
     Dates: start: 2016
  4. BUPRENORPHINE. [Suspect]
     Active Substance: BUPRENORPHINE
     Indication: PRODUCT USED FOR UNKNOWN INDICATION
     Route: 051
     Dates: start: 2016
  5. LEVOTHYOXIN [Suspect]
     Active Substance: LEVOTHYROXINE
     Route: 048
     Dates: start: 2016
  6. FENTANYL. [Suspect]
     Active Substance: FENTANYL
     Route: 048
     Dates: start: 2016
  7. HEROIN [Suspect]
     Active Substance: DIAMORPHINE
     Route: 048
     Dates: start: 2016
  8. GABAPENTIN. [Suspect]
     Active Substance: GABAPENTIN
     Route: 048
     Dates: start: 2016
  9. MELOXICAM. [Suspect]
     Active Substance: MELOXICAM
     Indication: PRODUCT USED FOR UNKNOWN INDICATION
     Route: 051
     Dates: start: 2016
  10. FENTANYL. [Suspect]
     Active Substance: FENTANYL
     Indication: PRODUCT USED FOR UNKNOWN INDICATION
     Route: 051
     Dates: start: 2016
  11. HEROIN [Suspect]
     Active Substance: DIAMORPHINE
     Indication: PRODUCT USED FOR UNKNOWN INDICATION
     Route: 051
     Dates: start: 2016
  12. BUPRENORPHINE. [Suspect]
     Active Substance: BUPRENORPHINE
     Route: 048
     Dates: start: 2016

REACTIONS (3)
  - Exposure during pregnancy [Unknown]
  - Cardio-respiratory arrest [Fatal]
  - Incorrect route of drug administration [Unknown]

NARRATIVE: CASE EVENT DATE: 2016
